FAERS Safety Report 5473001-2 (Version None)
Quarter: 2007Q4

REPORT INFORMATION
  Report Type: 
  Country: None (occurrence: None)
  Receive Date: 20071001
  Receipt Date: 20070228
  Transmission Date: 20080405
  Serious: No
  Sender: FDA-Public Use
  Company Number: US-ASTRAZENECA-2007UW03882

PATIENT
  Age: 53 Year
  Sex: Female

DRUGS (3)
  1. ARIMIDEX [Suspect]
     Indication: BREAST CANCER
     Route: 048
     Dates: start: 20060522
  2. EFFEXOR [Concomitant]
  3. NEURONTIN [Concomitant]

REACTIONS (4)
  - CHEILITIS [None]
  - GINGIVAL BLISTER [None]
  - HOT FLUSH [None]
  - ORAL PAIN [None]
